FAERS Safety Report 8518229-X (Version None)
Quarter: 2012Q3

REPORT INFORMATION
  Report Type: 
  Country: None (occurrence: None)
  Receive Date: 20120718
  Receipt Date: 20111122
  Transmission Date: 20120928
  Serious: No
  Sender: FDA-Public Use
  Company Number: US-BRISTOL-MYERS SQUIBB COMPANY-16245466

PATIENT
  Age: 43 Year
  Sex: Female

DRUGS (2)
  1. LOVENOX [Suspect]
     Indication: PULMONARY EMBOLISM
     Dosage: PARENTRAL INJ SOLN 120 MG/ML
     Route: 058
     Dates: start: 20111001
  2. WARFARIN SODIUM [Suspect]

REACTIONS (4)
  - INJECTION SITE HAEMATOMA [None]
  - FEELING ABNORMAL [None]
  - INJECTION SITE NODULE [None]
  - INJECTION SITE PRURITUS [None]
